FAERS Safety Report 5083001-2 (Version None)
Quarter: 2006Q3

REPORT INFORMATION
  Report Type: 
  Country: None (occurrence: None)
  Receive Date: 20060814
  Receipt Date: 20060731
  Transmission Date: 20061208
  Serious: Yes (Disabling)
  Sender: FDA-Public Use
  Company Number: TPG2006A00358

PATIENT
  Age: 84 Year
  Sex: Female

DRUGS (11)
  1. ACTOS [Suspect]
     Indication: DIABETES MELLITUS NON-INSULIN-DEPENDENT
     Dosage: 30 MG (30 MG, 1 IN 1 D) PER ORAL
     Route: 048
     Dates: start: 20060323, end: 20060518
  2. AMARYL [Concomitant]
  3. ASPIRIN [Concomitant]
  4. CITALOPRAM HYDROBROMIDE [Concomitant]
  5. ENALAPRIL MALEATE [Concomitant]
  6. FELODIPINE [Concomitant]
  7. GLUCOBAY [Concomitant]
  8. IDEOS (COLECALCIFEROL, CALCIUM CARBONATE) [Concomitant]
  9. OXAZEPAM [Concomitant]
  10. SURGAM (TIAPROFENIC ACID) [Concomitant]
  11. VALORON (NALOXONE HYDROCHLORIDE, TILIDINE HYDROCHLORIDE) [Concomitant]

REACTIONS (1)
  - ARTHRALGIA [None]
